FAERS Safety Report 14935742 (Version 5)
Quarter: 2019Q3

REPORT INFORMATION
  Report Type: Report from Study
  Country: US (occurrence: US)
  Receive Date: 20180524
  Receipt Date: 20190830
  Transmission Date: 20191004
  Serious: Yes (Hospitalization)
  Sender: FDA-Public Use
  Company Number: US-ACTELION-A-NJ2018-166331

PATIENT
  Age: 2 Year
  Sex: Male

DRUGS (9)
  1. SILDENAFIL. [Concomitant]
     Active Substance: SILDENAFIL
  2. BOSENTAN TABLET 32 MG PED US [Suspect]
     Active Substance: BOSENTAN
     Dosage: 16 MG, BID
     Route: 048
     Dates: start: 20170531
  3. FUROSEMIDE. [Concomitant]
     Active Substance: FUROSEMIDE
  4. BOSENTAN TABLET 32 MG PED US [Suspect]
     Active Substance: BOSENTAN
     Indication: PULMONARY ARTERIAL HYPERTENSION
     Dosage: 32 MG, BID
     Route: 048
     Dates: start: 20170531
  5. RANITIDINE. [Concomitant]
     Active Substance: RANITIDINE
  6. DIURIL [Concomitant]
     Active Substance: CHLOROTHIAZIDE
  7. LEVOTHYROXIN [Concomitant]
     Active Substance: LEVOTHYROXINE
     Dosage: 60 MCG, UNK
     Dates: start: 20190110
  8. SPIRONOLACTONE. [Concomitant]
     Active Substance: SPIRONOLACTONE
     Dosage: 100 MG, UNK
     Route: 048
     Dates: start: 20180730
  9. ASPIRIN. [Concomitant]
     Active Substance: ASPIRIN

REACTIONS (9)
  - Dyspnoea [Not Recovered/Not Resolved]
  - Pleural effusion [Not Recovered/Not Resolved]
  - Hospitalisation [Not Recovered/Not Resolved]
  - Cardiac operation [Not Recovered/Not Resolved]
  - Cardiac septal defect repair [Unknown]
  - Condition aggravated [Recovering/Resolving]
  - Heart disease congenital [Recovering/Resolving]
  - Respiratory distress [Recovering/Resolving]
  - Haematochezia [Unknown]

NARRATIVE: CASE EVENT DATE: 201810
